FAERS Safety Report 5571404-9 (Version None)
Quarter: 2007Q4

REPORT INFORMATION
  Report Type: 
  Country: None (occurrence: None)
  Receive Date: 20071221
  Receipt Date: 20071015
  Transmission Date: 20080405
  Serious: No
  Sender: FDA-Public Use
  Company Number: A0687710A

PATIENT
  Sex: Female

DRUGS (6)
  1. FLONASE [Suspect]
     Dosage: 2SPR TWICE PER DAY
     Route: 045
     Dates: start: 20000101
  2. FLUTICASONE PROPIONATE [Suspect]
     Dosage: 2SPR TWICE PER DAY
     Route: 045
     Dates: start: 20060101
  3. SINGULAIR [Concomitant]
  4. ALLEGRA [Concomitant]
  5. DIOVAN [Concomitant]
  6. ADVAIR DISKUS 100/50 [Concomitant]

REACTIONS (3)
  - EPISTAXIS [None]
  - HYPERAESTHESIA [None]
  - RHINORRHOEA [None]
